FAERS Safety Report 5988729-5 (Version None)
Quarter: 2008Q4

REPORT INFORMATION
  Report Type: 
  Country: None (occurrence: None)
  Receive Date: 20081210
  Receipt Date: 20081202
  Transmission Date: 20090506
  Serious: Yes (Other)
  Sender: FDA-Public Use
  Company Number: PHBS2008ES06481

PATIENT
  Age: 56 Year
  Sex: Male
  Weight: 105 kg

DRUGS (8)
  1. CYCLOSPORINE [Suspect]
     Indication: NEPHROTIC SYNDROME
     Dosage: 87.5 MG, BID
  2. CYCLOSPORINE [Suspect]
     Dosage: 125 MG/DAY
  3. HYDROXYUREA [Concomitant]
  4. FUROSEMIDE [Concomitant]
  5. BISOPROLOL FUMARATE [Concomitant]
  6. CLOPIDOGREL [Concomitant]
  7. PANTOPRAZOLE SODIUM [Concomitant]
  8. ALLOPURINOL [Concomitant]

REACTIONS (10)
  - BLOOD URIC ACID INCREASED [None]
  - CALCULUS URETERIC [None]
  - CHROMATURIA [None]
  - DRUG LEVEL BELOW THERAPEUTIC [None]
  - FLANK PAIN [None]
  - HYDRONEPHROSIS [None]
  - NEPHROLITHIASIS [None]
  - RENAL FAILURE ACUTE [None]
  - URETERAL STENT INSERTION [None]
  - URETERIC DILATATION [None]
